FAERS Safety Report 7030272-9 (Version None)
Quarter: 2010Q4

REPORT INFORMATION
  Report Type: 
  Country: None (occurrence: None)
  Receive Date: 20101006
  Receipt Date: 20100719
  Transmission Date: 20110411
  Serious: Yes (Hospitalization, Disabling, Other)
  Sender: FDA-Public Use
  Company Number: US-BAYER-200927549NA

PATIENT
  Age: 23 Year
  Sex: Female
  Weight: 52 kg

DRUGS (12)
  1. YASMIN [Suspect]
     Indication: ACNE
     Dates: start: 20070101, end: 20070731
  2. AMPICILLIN [Concomitant]
     Indication: ACNE
     Dates: start: 20070101
  3. DOXYCYCLINE [Concomitant]
     Indication: ACNE
     Dosage: UNIT DOSE: 100 MG
  4. TAZORAC [Concomitant]
     Indication: ACNE
     Dates: start: 20000101
  5. ASCORBIC ACID [Concomitant]
     Indication: FEELING COLD
  6. ADVIL LIQUI-GELS [Concomitant]
     Indication: HEADACHE
  7. ALEVE (CAPLET) [Concomitant]
     Indication: HEADACHE
  8. OSCION CLEANSER [Concomitant]
     Indication: ACNE
     Dates: start: 20000101
  9. TRIAZ [Concomitant]
     Indication: ACNE
     Dates: start: 20070101
  10. DUAC [Concomitant]
     Indication: ACNE
     Dates: start: 20000101
  11. RETIN-A PUMP [Concomitant]
     Indication: ACNE
     Dates: start: 20070101
  12. ARNICA [Concomitant]

REACTIONS (16)
  - ABASIA [None]
  - AFFECT LABILITY [None]
  - APHASIA [None]
  - ASTHENIA [None]
  - CEREBROVASCULAR ACCIDENT [None]
  - CLUMSINESS [None]
  - COGNITIVE DISORDER [None]
  - DYSARTHRIA [None]
  - DYSPRAXIA [None]
  - GAIT DISTURBANCE [None]
  - GAIT SPASTIC [None]
  - HEADACHE [None]
  - HEMIPLEGIA [None]
  - INJURY [None]
  - PAIN [None]
  - VOMITING [None]
